FAERS Safety Report 5530563-4 (Version None)
Quarter: 2007Q4

REPORT INFORMATION
  Report Type: 
  Country: None (occurrence: None)
  Receive Date: 20071130
  Receipt Date: 20071121
  Transmission Date: 20080405
  Serious: Yes (Other)
  Sender: FDA-Public Use
  Company Number: GB-JNJFOC-20071109316

PATIENT
  Sex: Male

DRUGS (3)
  1. TRAMADOL HCL [Suspect]
     Indication: ANALGESIA
     Route: 065
  2. BUTRANS [Suspect]
     Indication: ANALGESIA
     Route: 062
  3. MAXIMOL [Concomitant]
     Indication: ANTIEMETIC SUPPORTIVE CARE
     Route: 065

REACTIONS (2)
  - PARALYSIS [None]
  - SOMNOLENCE [None]
